FAERS Safety Report 11927283 (Version 1)
Quarter: 2016Q1

REPORT INFORMATION
  Report Type: Spontaneous
  Country: US (occurrence: None)
  Receive Date: 20160115
  Receipt Date: 20160115
  Transmission Date: 20160526
  Serious: Yes (Hospitalization, Other)
  Sender: FDA-Public Use
  Company Number: None

PATIENT
  Age: 53 Year
  Sex: Female
  Weight: 61.69 kg

DRUGS (2)
  1. REMERON [Concomitant]
     Active Substance: MIRTAZAPINE
  2. KENALOG [Suspect]
     Active Substance: TRIAMCINOLONE ACETONIDE
     Indication: NERVE BLOCK
     Dosage: 40 MG ONE INJECTION

REACTIONS (5)
  - Headache [None]
  - Nuclear magnetic resonance imaging abnormal [None]
  - Injection site reaction [None]
  - Injection site atrophy [None]
  - Head deformity [None]

NARRATIVE: CASE EVENT DATE: 20151002
